FAERS Safety Report 6654754-4 (Version None)
Quarter: 2010Q1

REPORT INFORMATION
  Report Type: 
  Country: None (occurrence: None)
  Receive Date: 20100327
  Receipt Date: 20100313
  Transmission Date: 20100710
  Serious: Yes (Disabling, Other)
  Sender: FDA-Public Use
  Company Number: US-JNJFOC-20090705593

PATIENT
  Sex: Male

DRUGS (9)
  1. LEVAQUIN [Suspect]
     Indication: SINUSITIS
     Route: 048
  2. MACROLIDES [Suspect]
     Indication: RHINITIS ALLERGIC
     Route: 065
  3. POLYGAM S/D [Concomitant]
     Route: 065
  4. ZITHROMAX [Concomitant]
     Indication: SINUSITIS
     Route: 065
  5. AVINZA [Concomitant]
     Dosage: 120 (UNITS UNSPECIFIED) DAILY
     Route: 065
  6. VICODIN [Concomitant]
     Dosage: 750 (UNITS UNSPECIFIED)
     Route: 065
  7. ATRIPLA [Concomitant]
     Indication: HIV TEST POSITIVE
     Route: 065
  8. ALLEGRA [Concomitant]
     Dosage: 60 (UNITS UNSPECIFIED)
     Route: 065
  9. ADDERALL 30 [Concomitant]
     Route: 065

REACTIONS (3)
  - FATIGUE [None]
  - MYOSITIS [None]
  - TENDONITIS [None]
